FAERS Safety Report 8132782-X (Version None)
Quarter: 2012Q1

REPORT INFORMATION
  Report Type: 
  Country: None (occurrence: None)
  Receive Date: 20120207
  Receipt Date: 20120126
  Transmission Date: 20120608
  Serious: Yes (Other)
  Sender: FDA-Public Use
  Company Number: 1178177

PATIENT
  Age: 57 Year
  Sex: Female

DRUGS (1)
  1. OXALIPLATIN [Suspect]
     Indication: NEOPLASM MALIGNANT
     Dosage: 130 MG, TOTAL, UNKNOWN, INTRAVENOUS DRIP
     Route: 041
     Dates: start: 20120112, end: 20120112

REACTIONS (3)
  - DYSPNOEA [None]
  - PARAESTHESIA ORAL [None]
  - THROAT TIGHTNESS [None]
